FAERS Safety Report 5194846-2 (Version None)
Quarter: 2006Q4

REPORT INFORMATION
  Report Type: 
  Country: None (occurrence: None)
  Receive Date: 20061229
  Receipt Date: 20061221
  Transmission Date: 20070319
  Serious: Yes (Hospitalization)
  Sender: FDA-Public Use
  Company Number: 2006PK02696

PATIENT
  Age: 54 Year
  Sex: Female

DRUGS (2)
  1. ZOMIG [Suspect]
     Indication: MIGRAINE
     Route: 048
     Dates: end: 20061021
  2. ZOLOFT [Interacting]
     Indication: DEPRESSION
     Route: 048
     Dates: start: 20061006, end: 20061020

REACTIONS (2)
  - DRUG INTERACTION [None]
  - DYSAESTHESIA [None]
